FAERS Safety Report 12654555 (Version 1)
Quarter: 2016Q3

REPORT INFORMATION
  Report Type: Spontaneous
  Country: US (occurrence: US)
  Receive Date: 20160816
  Receipt Date: 20160816
  Transmission Date: 20161109
  Serious: Yes (Hospitalization, Other)
  Sender: FDA-Public Use
  Company Number: US-BAYER-2016-153590

PATIENT
  Age: 26 Year
  Sex: Female

DRUGS (1)
  1. CALCIUM CARBONATE. [Suspect]
     Active Substance: CALCIUM CARBONATE
     Indication: ABDOMINAL PAIN

REACTIONS (4)
  - Overdose [None]
  - Hypercalcaemia [Recovering/Resolving]
  - Milk-alkali syndrome [Recovering/Resolving]
  - Pancreatitis [Recovered/Resolved]
